FAERS Safety Report 7136154-6 (Version None)
Quarter: 2010Q4

REPORT INFORMATION
  Report Type: 
  Country: None (occurrence: None)
  Receive Date: 20101205
  Receipt Date: 20101111
  Transmission Date: 20110411
  Serious: Yes (Hospitalization, Other)
  Sender: FDA-Public Use
  Company Number: JP-AMGEN-JPNSP2010005216

PATIENT

DRUGS (12)
  1. ENBREL [Suspect]
     Indication: RHEUMATOID ARTHRITIS
     Dosage: 25 MG, WEEKLY
     Route: 058
     Dates: end: 20100624
  2. RHEUMATREX [Suspect]
     Indication: RHEUMATOID ARTHRITIS
     Dosage: 6 MG, WEEKLY
     Route: 048
     Dates: end: 20100624
  3. PREDNISOLONE [Concomitant]
     Dosage: 5 MG, 1X/DAY
     Route: 048
  4. PREDNISOLONE [Concomitant]
     Dosage: 5 MG, 1X/DAY
     Route: 048
  5. ALFACALCIDOL [Concomitant]
     Dosage: 1 DF, 1X/DAY
     Route: 048
  6. DEPAKENE [Concomitant]
     Dosage: 200 MG, 2X/DAY
     Route: 048
     Dates: end: 20100624
  7. HYPEN [Concomitant]
     Dosage: 1 DF, 2X/DAY
     Route: 048
  8. ADALAT - SLOW RELEASE [Concomitant]
     Dosage: 40 MG, 1X/DAY
     Route: 048
  9. FOSAMAX [Concomitant]
     Dosage: 35 MG, WEEKLY
     Route: 048
     Dates: end: 20100624
  10. AMOBAN [Concomitant]
     Dosage: 1 DF, 1X/DAY
     Route: 048
     Dates: end: 20100624
  11. GASMOTIN [Concomitant]
     Dosage: 1 DF, 3X/DAY
     Route: 048
  12. LANSOPRAZOLE [Concomitant]
     Dosage: 15 MG, 1X/DAY
     Route: 048
     Dates: end: 20100624

REACTIONS (2)
  - BONE MARROW FAILURE [None]
  - STOMATITIS [None]
